FAERS Safety Report 11254365 (Version 1)
Quarter: 2015Q3

REPORT INFORMATION
  Report Type: Spontaneous
  Country: US (occurrence: None)
  Receive Date: 20150708
  Receipt Date: 20150708
  Transmission Date: 20151125
  Serious: Yes (Other)
  Sender: FDA-Public Use
  Company Number: None

PATIENT
  Age: 16 Year
  Sex: Female
  Weight: 105.69 kg

DRUGS (1)
  1. LEVOTHYROXINE 50 MCG [Suspect]
     Active Substance: LEVOTHYROXINE
     Route: 048
     Dates: start: 20150115, end: 20150205

REACTIONS (3)
  - Fatigue [None]
  - Hyperhidrosis [None]
  - Nausea [None]

NARRATIVE: CASE EVENT DATE: 20150204
